FAERS Safety Report 9530301 (Version 1)
Quarter: 2013Q3

REPORT INFORMATION
  Report Type: Spontaneous
  Country: US (occurrence: US)
  Receive Date: 20130917
  Receipt Date: 20130917
  Transmission Date: 20140515
  Serious: Yes (Other)
  Sender: FDA-Public Use
  Company Number: US-ABBVIE-13P-163-1145673-00

PATIENT
  Age: 67 Year
  Sex: Male
  Weight: 79.45 kg

DRUGS (9)
  1. ANDROGEL [Suspect]
     Indication: BLOOD TESTOSTERONE DECREASED
     Route: 061
     Dates: start: 201308
  2. HYDROCODONE [Concomitant]
     Indication: PAIN
  3. FLOMAX [Concomitant]
     Indication: BENIGN PROSTATIC HYPERPLASIA
  4. GLIMEPIRIDE [Concomitant]
     Indication: DIABETES MELLITUS
  5. NEXIUM [Concomitant]
     Indication: PRODUCT USED FOR UNKNOWN INDICATION
  6. ASPIRIN [Concomitant]
     Indication: PRODUCT USED FOR UNKNOWN INDICATION
  7. XANAX [Concomitant]
     Indication: ANGINA PECTORIS
  8. VITAMIN B COMPLEX [Concomitant]
     Indication: PRODUCT USED FOR UNKNOWN INDICATION
  9. SOMA [Concomitant]
     Indication: PRODUCT USED FOR UNKNOWN INDICATION
     Dates: end: 2013

REACTIONS (5)
  - Pharyngeal operation [Recovered/Resolved]
  - Spinal operation [Recovered/Resolved]
  - Drug ineffective [Not Recovered/Not Resolved]
  - Genital burning sensation [Not Recovered/Not Resolved]
  - Mass [Not Recovered/Not Resolved]
